FAERS Safety Report 4639212-0 (Version None)
Quarter: 2005Q2

REPORT INFORMATION
  Report Type: 
  Country: None (occurrence: None)
  Receive Date: 20050418
  Receipt Date: 20050331
  Transmission Date: 20051028
  Serious: Yes (Other)
  Sender: FDA-Public Use
  Company Number: S05-GER-01406-01

PATIENT
  Sex: Male

DRUGS (1)
  1. CITALOPRAM HYDROBROMIDE [Suspect]

REACTIONS (4)
  - ANHIDROSIS [None]
  - DIABETES MELLITUS [None]
  - EAR DISORDER [None]
  - EJACULATION DISORDER [None]
